FAERS Safety Report 9259986 (Version 1)
Quarter: 2013Q2

REPORT INFORMATION
  Report Type: Spontaneous
  Country: JP (occurrence: JP)
  Receive Date: 20130429
  Receipt Date: 20130429
  Transmission Date: 20140414
  Serious: Yes (Hospitalization)
  Sender: FDA-Public Use
  Company Number: JP-009507513-1304JPN013468

PATIENT
  Age: 20 Year
  Sex: Male

DRUGS (6)
  1. TRYPTANOL [Suspect]
     Dosage: 750 MG, ONE TIME DOSE
     Route: 048
     Dates: start: 20130416, end: 20130416
  2. CYMBALTA [Concomitant]
     Dosage: 20 MG, UNK
     Route: 048
     Dates: start: 20120816, end: 20130415
  3. ABILIFY [Concomitant]
     Dosage: 24 MG, UNK
     Route: 048
     Dates: start: 20120816, end: 20130415
  4. LAMICTAL [Concomitant]
     Dosage: 400 MG, UNK
     Route: 048
     Dates: start: 20120824, end: 20130415
  5. LEVOTOMIN [Concomitant]
     Dosage: 5 MG, UNK
     Route: 048
     Dates: start: 20121015, end: 20130415
  6. RESLIN TABLETS 25 [Concomitant]
     Dosage: 25 MG, UNK
     Route: 048
     Dates: start: 20120816, end: 20130415

REACTIONS (4)
  - Intentional overdose [Recovered/Resolved]
  - Depressed level of consciousness [Recovered/Resolved]
  - Tachycardia [Recovered/Resolved]
  - Dyskinesia [Recovered/Resolved]
